FAERS Safety Report 18854623 (Version 1)
Quarter: 2021Q1

REPORT INFORMATION
  Report Type: Spontaneous
  Country: US (occurrence: US)
  Receive Date: 20210205
  Receipt Date: 20210205
  Transmission Date: 20210420
  Serious: No
  Sender: FDA-Public Use
  Company Number: US-ENDO PHARMACEUTICALS INC-2020-003708

PATIENT
  Age: 42 Year
  Sex: Female

DRUGS (1)
  1. BUPROPION HYDROCHLORIDE. [Suspect]
     Active Substance: BUPROPION HYDROCHLORIDE
     Indication: DEPRESSION
     Dosage: 1 DF, DAILY
     Route: 065
     Dates: start: 2013

REACTIONS (3)
  - Anxiety [Unknown]
  - Unevaluable event [Unknown]
  - Product colour issue [Unknown]

NARRATIVE: CASE EVENT DATE: 20200507
